FAERS Safety Report 26090408 (Version 2)
Quarter: 2025Q4

REPORT INFORMATION
  Report Type: Spontaneous
  Country: US (occurrence: US)
  Receive Date: 20251126
  Receipt Date: 20251201
  Transmission Date: 20260118
  Serious: Yes (Other)
  Sender: BAUSCH AND LOMB
  Company Number: US-BAUSCH-BH-2025-020892

PATIENT
  Age: 32 Year
  Sex: Female

DRUGS (1)
  1. METFORMIN [Suspect]
     Active Substance: METFORMIN HYDROCHLORIDE
     Indication: Product used for unknown indication
     Dosage: 145 TABLETS
     Route: 048

REACTIONS (5)
  - Blood creatinine increased [Unknown]
  - Toxicity to various agents [Unknown]
  - Hypoglycaemia [Recovered/Resolved]
  - Blood lactic acid increased [Unknown]
  - Intentional overdose [Unknown]
